FAERS Safety Report 15314851 (Version 1)
Quarter: 2018Q3

REPORT INFORMATION
  Report Type: Spontaneous
  Country: US (occurrence: US)
  Receive Date: 20180815
  Receipt Date: 20180815
  Transmission Date: 20181010
  Serious: Yes (Hospitalization)
  Sender: FDA-Public Use
  Company Number: None

PATIENT
  Sex: Male

DRUGS (3)
  1. ENBREL [Suspect]
     Active Substance: ETANERCEPT
     Indication: PSORIASIS
     Dosage: ?          OTHER FREQUENCY:WEEKLY;?
     Route: 058
     Dates: start: 20120810
  2. PROBIOTIC [Concomitant]
     Active Substance: PROBIOTICS NOS
  3. PROPECIA [Concomitant]
     Active Substance: FINASTERIDE

REACTIONS (1)
  - Nephrolithiasis [None]
